FAERS Safety Report 23220526 (Version 2)
Quarter: 2024Q1

REPORT INFORMATION
  Report Type: Spontaneous
  Country: TR (occurrence: TR)
  Receive Date: 20231123
  Receipt Date: 20240227
  Transmission Date: 20240409
  Serious: Yes (Life-Threatening, Hospitalization)
  Sender: FDA-Public Use
  Company Number: TR-TEVA-2023-TR-2947121

PATIENT
  Age: 16 Year
  Sex: Male

DRUGS (7)
  1. AMOXICILLIN\CLAVULANIC ACID [Suspect]
     Active Substance: AMOXICILLIN\CLAVULANIC ACID
     Indication: Tooth abscess
     Route: 065
  2. DEXKETOPROFEN [Suspect]
     Active Substance: DEXKETOPROFEN
     Indication: Tooth abscess
     Route: 065
  3. EPINEPHRINE [Suspect]
     Active Substance: EPINEPHRINE
     Indication: Anaphylactic reaction
     Route: 030
  4. EPINEPHRINE [Suspect]
     Active Substance: EPINEPHRINE
     Indication: Anaphylactic reaction
     Route: 041
  5. METHYLPREDNISOLONE [Suspect]
     Active Substance: METHYLPREDNISOLONE
     Indication: Anaphylactic reaction
     Route: 042
  6. ALBUTEROL [Suspect]
     Active Substance: ALBUTEROL
     Indication: Anaphylactic reaction
     Dosage: DOSAGE TEXT: VIA NEBULIZER MASK
     Route: 065
  7. SALINE [Suspect]
     Active Substance: SODIUM CHLORIDE
     Indication: Anaphylactic reaction
     Dosage: OVER 10MINUTES
     Route: 065

REACTIONS (10)
  - Anaphylactic reaction [Unknown]
  - Hypotension [Unknown]
  - Bradycardia [Unknown]
  - Ventricular extrasystoles [Unknown]
  - Drug ineffective [Unknown]
  - Loss of consciousness [Unknown]
  - Hypoxia [Unknown]
  - Rash pruritic [Unknown]
  - Dyspnoea [Unknown]
  - Chest pain [Unknown]
